FAERS Safety Report 5339205-4 (Version None)
Quarter: 2007Q2

REPORT INFORMATION
  Report Type: 
  Country: None (occurrence: None)
  Receive Date: 20070530
  Receipt Date: 20070523
  Transmission Date: 20071010
  Serious: Yes (Other)
  Sender: FDA-Public Use
  Company Number: US-PFIZER INC-2007041858

PATIENT
  Sex: Male
  Weight: 20.454 kg

DRUGS (4)
  1. ZYRTEC [Suspect]
     Indication: HYPERSENSITIVITY
  2. MULTIVITAMIN [Concomitant]
  3. DRUG, UNSPECIFIED [Concomitant]
  4. FLUORIDE [Concomitant]

REACTIONS (4)
  - ABNORMAL BEHAVIOUR [None]
  - ABNORMAL DREAMS [None]
  - HYPERSENSITIVITY [None]
  - NIGHTMARE [None]
